FAERS Safety Report 9094113 (Version 1)
Quarter: 2013Q1

REPORT INFORMATION
  Report Type: Spontaneous
  Country: US (occurrence: None)
  Receive Date: 20130122
  Receipt Date: 20130122
  Transmission Date: 20140127
  Serious: Yes (Hospitalization, Other)
  Sender: FDA-Public Use
  Company Number: 2011-532

PATIENT
  Age: 39 Year
  Sex: Female

DRUGS (6)
  1. PRIALT (ZICONOTIDE) INTRATHECAL INFUSION [Suspect]
     Dosage: ONCE/HOUR, INTRATHECAL
     Route: 037
  2. BACLOFEN [Suspect]
     Dosage: ONCE/HOUR, INTRATHECAL
     Route: 037
  3. (BUPIVACAINE HYDROCHLORIDE) [Suspect]
     Dosage: ONCE/HOUR, INTRATHECAL
     Route: 037
  4. ZYPREXA (OLANZAPINE) [Concomitant]
  5. CELEXA (CITALOPRAM HYDROBROMIDE) [Concomitant]
  6. ATIVAN (LORAZEPAM) [Concomitant]

REACTIONS (6)
  - Encephalopathy [None]
  - Anxiety [None]
  - Abnormal behaviour [None]
  - Dehydration [None]
  - Delirium [None]
  - Mental status changes [None]
